FAERS Safety Report 17661552 (Version 2)
Quarter: 2020Q2

REPORT INFORMATION
  Report Type: Spontaneous
  Country: GB (occurrence: GB)
  Receive Date: 20200413
  Receipt Date: 20200428
  Transmission Date: 20200713
  Serious: Yes (Death, Other)
  Sender: FDA-Public Use
  Company Number: GB-MYLANLABS-2020M1036275

PATIENT
  Sex: Female

DRUGS (1)
  1. CLOZAPINE. [Suspect]
     Active Substance: CLOZAPINE
     Indication: SCHIZOPHRENIA
     Dosage: 300 MILLIGRAM
     Route: 065

REACTIONS (8)
  - Death [Fatal]
  - Cognitive disorder [Unknown]
  - Chills [Unknown]
  - Withdrawal syndrome [Unknown]
  - Amnesia [Unknown]
  - Speech disorder [Unknown]
  - Gait disturbance [Unknown]
  - Acute psychosis [Unknown]
